FAERS Safety Report 7298066-7 (Version None)
Quarter: 2011Q1

REPORT INFORMATION
  Report Type: 
  Country: None (occurrence: None)
  Receive Date: 20110217
  Receipt Date: 20110207
  Transmission Date: 20110831
  Serious: Yes (Hospitalization)
  Sender: FDA-Public Use
  Company Number: PHHY2011VE03576

PATIENT
  Sex: Male

DRUGS (8)
  1. FOSAMAX [Concomitant]
     Dosage: UNK
     Dates: start: 20090101
  2. HYZAAR [Concomitant]
     Indication: HYPERTENSION
  3. CALCIBON (CALCIUM CITRATE) [Concomitant]
  4. ARTRODAR [Concomitant]
     Indication: ARTHRITIS
  5. CHONDROITIN A [Concomitant]
  6. GLUCOSAMINE [Concomitant]
  7. PLAVIX [Concomitant]
  8. ACLASTA [Suspect]
     Indication: OSTEOPOROSIS
     Dosage: 5 MG
     Route: 042
     Dates: start: 20100606

REACTIONS (2)
  - FALL [None]
  - HAND FRACTURE [None]
